FAERS Safety Report 26131127 (Version 1)
Quarter: 2025Q4

REPORT INFORMATION
  Report Type: Spontaneous
  Country: US (occurrence: US)
  Receive Date: 20251208
  Receipt Date: 20251208
  Transmission Date: 20260118
  Serious: No
  Sender: SANOFI AVENTIS
  Company Number: US-SA-2025SA364518

PATIENT
  Sex: Female
  Weight: 163.29 kg

DRUGS (1)
  1. DUPIXENT [Suspect]
     Active Substance: DUPILUMAB
     Indication: Seasonal allergy
     Dosage: 300 MG, QOW
     Route: 058

REACTIONS (8)
  - Seasonal allergy [Unknown]
  - Condition aggravated [Unknown]
  - Dermatitis allergic [Unknown]
  - Rash [Unknown]
  - Pruritus [Unknown]
  - Skin irritation [Unknown]
  - Urticaria [Unknown]
  - Product use in unapproved indication [Unknown]
